FAERS Safety Report 21976569 (Version 6)
Quarter: 2023Q2

REPORT INFORMATION
  Report Type: Spontaneous
  Country: US (occurrence: US)
  Receive Date: 20230210
  Receipt Date: 20230522
  Transmission Date: 20230722
  Serious: No
  Sender: FDA-Public Use
  Company Number: US-PFIZER INC-202300057040

PATIENT
  Age: 9 Year
  Sex: Female
  Weight: 19.05 kg

DRUGS (1)
  1. GENOTROPIN [Suspect]
     Active Substance: SOMATROPIN
     Indication: Growth hormone deficiency
     Dosage: 0.5 MG, 1X/DAY
     Dates: start: 20230123

REACTIONS (5)
  - Drug dose omission by device [Unknown]
  - Wrong technique in device usage process [Unknown]
  - Device breakage [Unknown]
  - Device leakage [Unknown]
  - Device issue [Unknown]

NARRATIVE: CASE EVENT DATE: 20230101
